FAERS Safety Report 7410748-2 (Version None)
Quarter: 2011Q2

REPORT INFORMATION
  Report Type: 
  Country: None (occurrence: None)
  Receive Date: 20110413
  Receipt Date: 20101014
  Transmission Date: 20111010
  Serious: Yes (Hospitalization, Other)
  Sender: FDA-Public Use
  Company Number: US-BAYER-201010028NA

PATIENT
  Age: 31 Year
  Sex: Female
  Weight: 104 kg

DRUGS (10)
  1. WARFARIN [Concomitant]
     Dosage: 5 MG, UNK
     Dates: start: 20090303, end: 20100401
  2. PLAVIX [Concomitant]
     Dosage: 75 MG, UNK
     Dates: start: 20090218
  3. LOW-OGESTREL [Concomitant]
     Dosage: UNK
     Dates: start: 20080801, end: 20090201
  4. ASPIRIN [Concomitant]
  5. PRILOSEC [Concomitant]
  6. LEVOTHROID [Concomitant]
     Indication: HYPOTHYROIDISM
     Dosage: 50 MCG/24HR, UNK
  7. HYDROCODONE [Concomitant]
  8. YAZ [Suspect]
     Route: 048
  9. YASMIN [Suspect]
     Route: 048
  10. DARVOCET [Concomitant]

REACTIONS (6)
  - CHOLECYSTITIS CHRONIC [None]
  - CHOLELITHIASIS [None]
  - CHOLECYSTECTOMY [None]
  - CEREBROVASCULAR ACCIDENT [None]
  - DEEP VEIN THROMBOSIS [None]
  - CHOLESTEROSIS [None]
